FAERS Safety Report 6208960-3 (Version None)
Quarter: 2009Q2

REPORT INFORMATION
  Report Type: 
  Country: None (occurrence: None)
  Receive Date: 20090522
  Receipt Date: 20090123
  Transmission Date: 20091009
  Serious: No
  Sender: FDA-Public Use
  Company Number: 8041753

PATIENT
  Age: 19 Year
  Sex: Female
  Weight: 61.3 kg

DRUGS (8)
  1. CIMZIA [Suspect]
     Indication: CROHN'S DISEASE
     Dosage: 400 MG SC
     Route: 058
     Dates: start: 20090122
  2. PREDNISONE [Concomitant]
  3. METHOTREXATE [Concomitant]
  4. LACTULOSE [Concomitant]
  5. FOLIC ACID [Concomitant]
  6. VITAMIN D [Concomitant]
  7. FUROSEMIDE [Concomitant]
  8. URSODIOL [Concomitant]

REACTIONS (2)
  - DRUG DISPENSING ERROR [None]
  - INJECTION SITE RASH [None]
